FAERS Safety Report 12915837 (Version 5)
Quarter: 2017Q3

REPORT INFORMATION
  Report Type: Spontaneous
  Country: US (occurrence: US)
  Receive Date: 20161107
  Receipt Date: 20170721
  Transmission Date: 20171127
  Serious: Yes (Hospitalization, Other)
  Sender: FDA-Public Use
  Company Number: PHEH2016US028780

PATIENT
  Age: 55 Year
  Sex: Male

DRUGS (3)
  1. LENVIMA [Suspect]
     Active Substance: LENVATINIB
     Indication: RENAL CELL CARCINOMA
     Dosage: 18 MG, QD
     Route: 048
     Dates: start: 20161024
  2. AFINITOR [Suspect]
     Active Substance: EVEROLIMUS
     Indication: RENAL CELL CARCINOMA
     Dosage: 5 MG, QD
     Route: 048
     Dates: start: 20161024
  3. LENVIMA [Suspect]
     Active Substance: LENVATINIB
     Dosage: 14 MG, QD
     Route: 048

REACTIONS (8)
  - Malignant neoplasm progression [Unknown]
  - Diarrhoea [Not Recovered/Not Resolved]
  - Metastases to bone [Unknown]
  - Skin disorder [Recovered/Resolved]
  - Renal cell carcinoma [Unknown]
  - Blood pressure increased [Recovering/Resolving]
  - Dyspnoea [Unknown]
  - Fatigue [Not Recovered/Not Resolved]

NARRATIVE: CASE EVENT DATE: 20161101
